FAERS Safety Report 13923547 (Version 1)
Quarter: 2017Q3

REPORT INFORMATION
  Report Type: Spontaneous
  Country: US (occurrence: US)
  Receive Date: 20170830
  Receipt Date: 20170830
  Transmission Date: 20171127
  Serious: No
  Sender: FDA-Public Use
  Company Number: None

PATIENT
  Age: 81 Year
  Sex: Female
  Weight: 59 kg

DRUGS (6)
  1. NORTRIPTYLINE [Concomitant]
     Active Substance: NORTRIPTYLINE
  2. LISINOPRIL. [Concomitant]
     Active Substance: LISINOPRIL
  3. FOLIC ACID. [Concomitant]
     Active Substance: FOLIC ACID
  4. HARVONI [Suspect]
     Active Substance: LEDIPASVIR\SOFOSBUVIR
     Indication: CHRONIC HEPATITIS C
     Dosage: 1 DF DOSAGE DAILY ORAL
     Route: 048
  5. FUROSEMIDE. [Concomitant]
     Active Substance: FUROSEMIDE
  6. OMEPRAZOLE. [Concomitant]
     Active Substance: OMEPRAZOLE

REACTIONS (5)
  - Dysarthria [None]
  - Syncope [None]
  - Confusional state [None]
  - Abnormal behaviour [None]
  - Dizziness [None]

NARRATIVE: CASE EVENT DATE: 20170814
